FAERS Safety Report 5515671-6 (Version None)
Quarter: 2007Q4

REPORT INFORMATION
  Report Type: 
  Country: None (occurrence: None)
  Receive Date: 20071113
  Receipt Date: 20070809
  Transmission Date: 20080405
  Serious: Yes (Hospitalization)
  Sender: FDA-Public Use
  Company Number: A0669222A

PATIENT
  Age: 65 Year
  Sex: Male

DRUGS (13)
  1. COREG [Suspect]
     Dosage: 12.5MG TWICE PER DAY
     Route: 048
     Dates: start: 20050101, end: 20060901
  2. COREG CR [Suspect]
     Dosage: 80MG PER DAY
     Route: 048
  3. GLUCOPHAGE [Concomitant]
  4. INSULIN [Concomitant]
  5. PACERONE [Concomitant]
  6. DIGITEK [Concomitant]
  7. POTASSIUM CHLORIDE [Concomitant]
  8. LASIX [Concomitant]
  9. MOEXIPRIL HCL [Concomitant]
  10. VITAMIN D [Concomitant]
  11. SYNTHROID [Concomitant]
  12. ZOLOFT [Concomitant]
  13. COUMADIN [Concomitant]

REACTIONS (3)
  - CARDIAC DISORDER [None]
  - DIARRHOEA [None]
  - DIZZINESS [None]
